FAERS Safety Report 25968710 (Version 1)
Quarter: 2025Q4

REPORT INFORMATION
  Report Type: Spontaneous
  Country: US (occurrence: US)
  Receive Date: 20251028
  Receipt Date: 20251028
  Transmission Date: 20260118
  Serious: Yes (Hospitalization, Other)
  Sender: PFIZER
  Company Number: US-PFIZER INC-202500209336

PATIENT
  Age: 39 Year
  Sex: Female

DRUGS (1)
  1. VELSIPITY [Suspect]
     Active Substance: ETRASIMOD ARGININE
     Dosage: UNK

REACTIONS (4)
  - Colitis [Unknown]
  - Colitis ulcerative [Unknown]
  - Anal fissure [Unknown]
  - Weight increased [Unknown]
